FAERS Safety Report 6186296-7 (Version None)
Quarter: 2009Q2

REPORT INFORMATION
  Report Type: 
  Country: None (occurrence: None)
  Receive Date: 20090511
  Receipt Date: 20090506
  Transmission Date: 20091009
  Serious: Yes (Death)
  Sender: FDA-Public Use
  Company Number: LB-SANOFI-SYNTHELABO-F01200900425

PATIENT
  Age: 65 Year
  Sex: Male
  Weight: 65 kg

DRUGS (7)
  1. CALCIUM FOLINATE [Suspect]
     Route: 041
     Dates: start: 20090212
  2. VASTAREL [Concomitant]
  3. DIGOXIN [Concomitant]
  4. LASIX [Concomitant]
  5. CORDARONE [Concomitant]
  6. FLUOROURACIL [Suspect]
     Route: 042
     Dates: start: 20090212
  7. ELOXATIN [Suspect]
     Indication: COLORECTAL CANCER
     Route: 041
     Dates: start: 20090212, end: 20090212

REACTIONS (1)
  - CARDIOVASCULAR DISORDER [None]
